FAERS Safety Report 24372397 (Version 1)
Quarter: 2024Q3

REPORT INFORMATION
  Report Type: Spontaneous
  Country: CN (occurrence: CN)
  Receive Date: 20240927
  Receipt Date: 20240927
  Transmission Date: 20241016
  Serious: Yes (Hospitalization)
  Sender: RANBAXY
  Company Number: CN-SUN PHARMACEUTICAL INDUSTRIES LTD-2024R1-468896

PATIENT
  Age: 33 Year
  Sex: Female
  Weight: 76 kg

DRUGS (7)
  1. PALIPERIDONE [Suspect]
     Active Substance: PALIPERIDONE
     Indication: Substance-induced psychotic disorder
     Dosage: 3 MILLIGRAM, QD
     Route: 048
     Dates: start: 20240903, end: 20240913
  2. QUETIAPINE [Suspect]
     Active Substance: QUETIAPINE
     Indication: Substance-induced psychotic disorder
     Dosage: 600 MILLIGRAM, QD
     Route: 048
     Dates: start: 20240611, end: 20240913
  3. RISPERIDONE [Suspect]
     Active Substance: RISPERIDONE
     Indication: Substance-induced psychotic disorder
     Dosage: 2 MILLIGRAM, BID
     Route: 048
     Dates: start: 20240611, end: 20240903
  4. LITHIUM CARBONATE [Concomitant]
     Active Substance: LITHIUM CARBONATE
     Indication: Substance-induced psychotic disorder
     Dosage: 0.3 GRAM, QD
     Route: 048
     Dates: start: 20240611, end: 20240813
  5. VALPROATE MAGNESIUM [Concomitant]
     Active Substance: VALPROATE MAGNESIUM
     Indication: Substance-induced psychotic disorder
     Dosage: 0.5 GRAM, BID
     Route: 048
     Dates: start: 20240611, end: 20240913
  6. METFORMIN HYDROCHLORIDE [Concomitant]
     Active Substance: METFORMIN HYDROCHLORIDE
     Indication: Diabetes mellitus
     Dosage: 0.5 GRAM, BID
     Route: 048
     Dates: start: 20240613, end: 20240913
  7. TRIHEXYPHENIDYL HYDROCHLORIDE [Concomitant]
     Active Substance: TRIHEXYPHENIDYL HYDROCHLORIDE
     Indication: Extrapyramidal disorder
     Dosage: 2 MILLIGRAM, TID
     Route: 048
     Dates: start: 20240611, end: 20240913

REACTIONS (1)
  - Menstrual disorder [Unknown]

NARRATIVE: CASE EVENT DATE: 20240911
